FAERS Safety Report 19051443 (Version 2)
Quarter: 2021Q4

REPORT INFORMATION
  Report Type: Report from Study
  Country: US (occurrence: US)
  Receive Date: 20210324
  Receipt Date: 20211005
  Transmission Date: 20220304
  Serious: Yes (Other)
  Sender: FDA-Public Use
  Company Number: NVSC2021US059812

PATIENT
  Sex: Female

DRUGS (1)
  1. PROMACTA [Suspect]
     Active Substance: ELTROMBOPAG OLAMINE
     Indication: Product used for unknown indication
     Dosage: UNK
     Route: 065

REACTIONS (6)
  - Blindness [Unknown]
  - Visual impairment [Unknown]
  - Infection [Not Recovered/Not Resolved]
  - Platelet count decreased [Unknown]
  - Product dose omission issue [Unknown]
  - Product supply issue [Unknown]
